FAERS Safety Report 9462163 (Version 1)
Quarter: 2013Q3

REPORT INFORMATION
  Report Type: Spontaneous
  Country: US (occurrence: None)
  Receive Date: 20130813
  Receipt Date: 20130813
  Transmission Date: 20140515
  Serious: Yes (Other)
  Sender: FDA-Public Use
  Company Number: JPI-P-034314

PATIENT
  Age: 60 Year
  Sex: Female
  Weight: 63.5 kg

DRUGS (1)
  1. XYREM [Suspect]
     Indication: FIBROMYALGIA
     Dosage: 9GM (4.5GM, 2 IN 1 D) ORAL
     Route: 048
     Dates: start: 20080912

REACTIONS (1)
  - Knee arthroplasty [None]
